FAERS Safety Report 6385194-3 (Version None)
Quarter: 2009Q4

REPORT INFORMATION
  Report Type: 
  Country: None (occurrence: None)
  Receive Date: 20091002
  Receipt Date: 20090611
  Transmission Date: 20100525
  Serious: No
  Sender: FDA-Public Use
  Company Number: US-ASTRAZENECA-2008UW04079

PATIENT
  Age: 61 Year
  Sex: Female
  Weight: 65.8 kg

DRUGS (6)
  1. ARIMIDEX [Suspect]
     Indication: BREAST CANCER
     Route: 048
     Dates: start: 20070101
  2. CRESTOR [Suspect]
     Route: 048
     Dates: start: 20081001
  3. LIPITOR [Concomitant]
  4. CLONAZEPAM [Concomitant]
  5. METAMUCIL [Concomitant]
  6. CALTRATE [Concomitant]

REACTIONS (8)
  - ALOPECIA [None]
  - ARTHRALGIA [None]
  - BLOOD CHOLESTEROL INCREASED [None]
  - BLOOD TRIGLYCERIDES INCREASED [None]
  - HAIR TEXTURE ABNORMAL [None]
  - PAIN IN EXTREMITY [None]
  - PERSONALITY CHANGE [None]
  - TRICHORRHEXIS [None]
